FAERS Safety Report 13292202 (Version 6)
Quarter: 2017Q3

REPORT INFORMATION
  Report Type: Report from Study
  Country: US (occurrence: US)
  Receive Date: 20170303
  Receipt Date: 20170728
  Transmission Date: 20171127
  Serious: Yes (Hospitalization, Other)
  Sender: FDA-Public Use
  Company Number: US-GILEAD-2017-0260683

PATIENT
  Age: 55 Year
  Sex: Male

DRUGS (3)
  1. AMBRISENTAN [Suspect]
     Active Substance: AMBRISENTAN
     Indication: PRODUCT USED FOR UNKNOWN INDICATION
     Dosage: 10 MG, QD
     Route: 065
     Dates: start: 20130325
  2. TYVASO [Concomitant]
     Active Substance: TREPROSTINIL
  3. ADCIRCA [Concomitant]
     Active Substance: TADALAFIL

REACTIONS (9)
  - Drug ineffective [Unknown]
  - Syncope [Unknown]
  - Cough [Unknown]
  - Nausea [Unknown]
  - Loss of consciousness [Unknown]
  - Unresponsive to stimuli [Unknown]
  - Pulmonary hypertension [Unknown]
  - Swelling [Unknown]
  - Wheezing [Unknown]
